FAERS Safety Report 7469970-1 (Version None)
Quarter: 2011Q2

REPORT INFORMATION
  Report Type: 
  Country: None (occurrence: None)
  Receive Date: 20110510
  Receipt Date: 20110429
  Transmission Date: 20111010
  Serious: Yes (Hospitalization)
  Sender: FDA-Public Use
  Company Number: US-ROCHE-766795

PATIENT
  Sex: Female
  Weight: 35.4 kg

DRUGS (5)
  1. BACLOFEN [Concomitant]
     Route: 048
  2. MOTRIN [Concomitant]
  3. PAXIL [Concomitant]
     Indication: ANXIETY
     Route: 048
     Dates: start: 20101021
  4. VALIUM [Concomitant]
     Dosage: FREWUENCY: TID PRN
     Route: 048
  5. TAMIFLU [Suspect]
     Route: 048
     Dates: start: 20110310, end: 20110311

REACTIONS (3)
  - MENTAL DISORDER [None]
  - HYPERTENSION [None]
  - HEART RATE INCREASED [None]
